FAERS Safety Report 8921221 (Version 1)
Quarter: 2012Q4

REPORT INFORMATION
  Report Type: 
  Country: FR (occurrence: FR)
  Receive Date: 20121121
  Receipt Date: 20121121
  Transmission Date: 20130627
  Serious: Yes (Disabling)
  Sender: FDA-Public Use
  Company Number: FR-ASTRAZENECA-2012SE87653

PATIENT
  Age: 47 Year
  Sex: Female

DRUGS (2)
  1. XYLOCAINE [Suspect]
     Indication: LOCAL ANAESTHESIA
     Dosage: Once/Single administration
     Route: 065
     Dates: start: 20120830, end: 20120830
  2. HYDROCORTANCYL [Suspect]
     Indication: RADICULITIS BRACHIAL
     Route: 019
     Dates: start: 20120830, end: 20120830

REACTIONS (5)
  - Ischaemic stroke [Not Recovered/Not Resolved]
  - Malaise [None]
  - Nystagmus [None]
  - Altered state of consciousness [None]
  - Ataxia [None]
